FAERS Safety Report 10483409 (Version 1)
Quarter: 2014Q3

REPORT INFORMATION
  Report Type: Spontaneous
  Country: AU (occurrence: AU)
  Receive Date: 20140930
  Receipt Date: 20140930
  Transmission Date: 20150326
  Serious: Yes (Other)
  Sender: FDA-Public Use
  Company Number: AU-009507513-1409AUS011004

PATIENT
  Age: 49 Year
  Sex: Male

DRUGS (8)
  1. ROCURONIUM BROMIDE. [Suspect]
     Active Substance: ROCURONIUM BROMIDE
     Dosage: 30 MG, UNK
     Route: 042
     Dates: start: 20140402
  2. METARAMINOL [Suspect]
     Active Substance: METARAMINOL
     Dosage: 0.5 MG, UNK
     Route: 042
  3. PERINDOPRIL [Suspect]
     Active Substance: PERINDOPRIL
  4. DEXAMETHASONE (+) FRAMYCETIN SULFATE (+) GRAMICIDIN [Suspect]
     Active Substance: DEXAMETHASONE\FRAMYCETIN\GRAMICIDIN
     Dosage: 4 MG, ONCE
     Route: 042
     Dates: start: 20140402
  5. GLYCOPYRROLATE. [Suspect]
     Active Substance: GLYCOPYRROLATE
     Dosage: 200 MICROGRAM, UNK
     Route: 042
  6. MIDAZOLAM [Suspect]
     Active Substance: MIDAZOLAM\MIDAZOLAM HYDROCHLORIDE
     Dosage: 9 MG, UNK
     Route: 042
     Dates: start: 20140402
  7. PROPOFOL. [Suspect]
     Active Substance: PROPOFOL
     Dosage: 60 MG, UNK
     Route: 042
     Dates: start: 20140402
  8. REMIFENTANIL HYDROCHLORIDE [Suspect]
     Active Substance: REMIFENTANIL HYDROCHLORIDE
     Dosage: 0.2 MG, UNK
     Route: 042
     Dates: start: 20140402

REACTIONS (1)
  - Angioedema [Recovered/Resolved]

NARRATIVE: CASE EVENT DATE: 20140402
